FAERS Safety Report 6309651-0 (Version None)
Quarter: 2009Q3

REPORT INFORMATION
  Report Type: 
  Country: None (occurrence: None)
  Receive Date: 20090814
  Receipt Date: 20090805
  Transmission Date: 20100115
  Serious: Yes (Hospitalization, Other)
  Sender: FDA-Public Use
  Company Number: DE-ROCHE-649550

PATIENT
  Age: 77 Year
  Sex: Female
  Weight: 75 kg

DRUGS (9)
  1. XELODA [Suspect]
     Indication: OVARIAN CANCER METASTATIC
     Route: 065
     Dates: start: 20090505, end: 20090513
  2. XELODA [Suspect]
     Route: 065
  3. BISOPROLOL [Concomitant]
  4. CITALOPRAM HYDROBROMIDE [Concomitant]
  5. HAEMITON [Concomitant]
  6. DIGITOXIN [Concomitant]
  7. L-THYROXIN [Concomitant]
  8. OMEP [Concomitant]
  9. DIAZEPAM [Concomitant]
     Dosage: TAKEN AT BEDTIME.

REACTIONS (3)
  - ANAEMIA [None]
  - GASTROENTERITIS [None]
  - HYPOKALAEMIA [None]
